FAERS Safety Report 9971888 (Version 1)
Quarter: 2014Q1

REPORT INFORMATION
  Report Type: Spontaneous
  Country: US (occurrence: None)
  Receive Date: 20140305
  Receipt Date: 20140305
  Transmission Date: 20141002
  Serious: Yes (Other)
  Sender: FDA-Public Use
  Company Number: None

PATIENT
  Age: 62 Year
  Sex: Female
  Weight: 70.31 kg

DRUGS (1)
  1. ZOLPIDEM 10 MG TEVA [Suspect]
     Indication: SLEEP DISORDER
     Dosage: 1 PILL ONCE DAILY ?LAST 5 YEARS
     Route: 048

REACTIONS (7)
  - Somnambulism [None]
  - Sleep-related eating disorder [None]
  - Quality of life decreased [None]
  - Depression [None]
  - Fatigue [None]
  - Drug ineffective [None]
  - Product substitution issue [None]
